FAERS Safety Report 4939239-5 (Version None)
Quarter: 2006Q1

REPORT INFORMATION
  Report Type: 
  Country: None (occurrence: None)
  Receive Date: 20060306
  Receipt Date: 20060214
  Transmission Date: 20060701
  Serious: Yes (Death, Hospitalization)
  Sender: FDA-Public Use
  Company Number: 2006-00354

PATIENT
  Age: 66 Year
  Sex: Female

DRUGS (1)
  1. VELCADE [Suspect]
     Indication: MULTIPLE MYELOMA
     Dates: start: 20031015, end: 20031001

REACTIONS (4)
  - LUNG DISORDER [None]
  - PLEURAL EFFUSION [None]
  - PYREXIA [None]
  - THERAPY NON-RESPONDER [None]
